FAERS Safety Report 19096728 (Version 2)
Quarter: 2021Q2

REPORT INFORMATION
  Report Type: Spontaneous
  Country: CN (occurrence: CN)
  Receive Date: 20210406
  Receipt Date: 20210506
  Transmission Date: 20210717
  Serious: Yes (Hospitalization, Other)
  Sender: FDA-Public Use
  Company Number: CN-PFIZER INC-2021326077

PATIENT
  Age: 93 Year
  Sex: Male

DRUGS (17)
  1. SULPERAZON [Suspect]
     Active Substance: CEFOPERAZONE SODIUM\SULBACTAM SODIUM
     Indication: PNEUMONIA
     Dosage: 3 G, 2X/DAY
     Route: 041
     Dates: start: 20210122, end: 20210128
  2. DONG LING DI FU [Suspect]
     Active Substance: BATROXOBIN
     Indication: CARDIOVERSION
  3. MEPEM [Suspect]
     Active Substance: MEROPENEM
     Indication: PNEUMONIA
  4. DONG LING DI FU [Suspect]
     Active Substance: BATROXOBIN
     Indication: BLOOD FIBRINOGEN INCREASED
     Dosage: 2.5, ALTERNATE DAY (ONCE EVERY 2 DAYS)
     Route: 041
     Dates: start: 20210125, end: 20210215
  5. DOCUSATE SODIUM. [Concomitant]
     Active Substance: DOCUSATE SODIUM
     Indication: DEFAECATION DISORDER
     Dosage: 100 MG, 3X/DAY
     Route: 048
     Dates: start: 20200322, end: 20210322
  6. BETALOC [METOPROLOL SUCCINATE] [Concomitant]
     Active Substance: METOPROLOL SUCCINATE
     Indication: HEART RATE
     Dosage: 23.750 MG, 1X/DAY
     Route: 048
     Dates: start: 20200322, end: 20210322
  7. FOSFOMYCIN CALCIUM [Suspect]
     Active Substance: FOSFOMYCIN CALCIUM
     Indication: PNEUMONIA
  8. MI TE [AZINTAMIDE] [Concomitant]
     Indication: DYSPEPSIA
     Dosage: 2 DF, 3X/DAY
     Route: 048
     Dates: start: 20200322, end: 20210322
  9. MADOPAR [Concomitant]
     Active Substance: BENSERAZIDE HYDROCHLORIDE\LEVODOPA
     Indication: PARKINSON^S DISEASE
     Dosage: 0.125 G, 3X/DAY
     Route: 048
     Dates: start: 20200322, end: 20210322
  10. DOCUSATE SODIUM. [Concomitant]
     Active Substance: DOCUSATE SODIUM
     Indication: CONSTIPATION
  11. SULPERAZON [Suspect]
     Active Substance: CEFOPERAZONE SODIUM\SULBACTAM SODIUM
     Dosage: 3 G, 3X/DAY
     Route: 041
     Dates: start: 20210129, end: 20210203
  12. FOSFOMYCIN CALCIUM [Suspect]
     Active Substance: FOSFOMYCIN CALCIUM
     Indication: PNEUMONITIS
     Dosage: 3 G, 1X/DAY
     Route: 048
     Dates: start: 20210129, end: 20210203
  13. CITICOLINE SODIUM [Concomitant]
     Active Substance: CITICOLINE SODIUM
     Indication: THERAPEUTIC PROCEDURE
     Dosage: 0.2 G, 2X/DAY
     Route: 048
     Dates: start: 20200322, end: 20210322
  14. MEPEM [Suspect]
     Active Substance: MEROPENEM
     Indication: PNEUMONITIS
     Dosage: 0.5 G, 4X/DAY
     Route: 041
     Dates: start: 20210203, end: 20210218
  15. FLUVASTATIN SODIUM. [Concomitant]
     Active Substance: FLUVASTATIN SODIUM
     Indication: LIPIDS ABNORMAL
     Dosage: 40 MG, 1X/DAY
     Route: 048
     Dates: start: 20200322, end: 20210322
  16. AO BO LAN [Concomitant]
     Indication: CEREBROVASCULAR DISORDER
     Dosage: 30 MG, 2X/DAY
     Route: 048
     Dates: start: 20210121, end: 20210225
  17. PARIET [Concomitant]
     Active Substance: RABEPRAZOLE SODIUM
     Indication: THERAPEUTIC PROCEDURE
     Dosage: 20 MG, 1X/DAY
     Route: 048
     Dates: start: 20200322, end: 20210322

REACTIONS (7)
  - Klebsiella infection [Unknown]
  - Drug-induced liver injury [Recovering/Resolving]
  - Drug ineffective [Unknown]
  - Hyperfibrinogenaemia [Unknown]
  - Off label use [Unknown]
  - Enterobacter bacteraemia [Unknown]
  - Urinary tract infection [Unknown]

NARRATIVE: CASE EVENT DATE: 2021
